FAERS Safety Report 6484304-7 (Version None)
Quarter: 2009Q4

REPORT INFORMATION
  Report Type: 
  Country: None (occurrence: None)
  Receive Date: 20091203
  Receipt Date: 20091127
  Transmission Date: 20100525
  Serious: Yes (Death)
  Sender: FDA-Public Use
  Company Number: 2009US004212

PATIENT
  Age: 18 Year
  Sex: Male
  Weight: 70 kg

DRUGS (3)
  1. AMBISOME [Suspect]
     Indication: BRONCHOPULMONARY ASPERGILLOSIS
     Dosage: 3 MG, UID/QD, IV NOS
     Route: 042
     Dates: start: 20071205, end: 20080104
  2. ITRACONAZOL (ITRACONAZOLE) [Concomitant]
  3. CASPOFUNGIN (CASPOFUNGIN) [Concomitant]

REACTIONS (2)
  - NEPHROPATHY TOXIC [None]
  - RESPIRATORY DISTRESS [None]
